APPROVED DRUG PRODUCT: CLOBAZAM
Active Ingredient: CLOBAZAM
Strength: 10MG
Dosage Form/Route: TABLET;ORAL
Application: A211711 | Product #001 | TE Code: AB
Applicant: MICRO LABS LTD
Approved: Jan 30, 2019 | RLD: No | RS: No | Type: RX